FAERS Safety Report 7023937-6 (Version None)
Quarter: 2010Q4

REPORT INFORMATION
  Report Type: 
  Country: None (occurrence: None)
  Receive Date: 20101001
  Receipt Date: 20100922
  Transmission Date: 20110411
  Serious: Yes (Other)
  Sender: FDA-Public Use
  Company Number: US-JNJFOC-20100707875

PATIENT
  Sex: Female
  Weight: 68.49 kg

DRUGS (4)
  1. INFLIXIMAB, RECOMBINANT [Suspect]
     Indication: PSORIATIC ARTHROPATHY
     Route: 042
  2. HUMIRA [Concomitant]
     Indication: PSORIASIS
     Route: 058
  3. CELEBREX [Concomitant]
     Indication: ARTHRITIS
  4. CENESTIN [Concomitant]
     Indication: HORMONE REPLACEMENT THERAPY

REACTIONS (1)
  - BREAST CANCER [None]
